FAERS Safety Report 23368256 (Version 1)
Quarter: 2024Q1

REPORT INFORMATION
  Report Type: Spontaneous
  Country: FR (occurrence: FR)
  Receive Date: 20240105
  Receipt Date: 20240105
  Transmission Date: 20240410
  Serious: Yes (Hospitalization, Other)
  Sender: FDA-Public Use
  Company Number: FR-CELLTRION INC.-2024FR000032

PATIENT

DRUGS (24)
  1. BEVACIZUMAB [Suspect]
     Active Substance: BEVACIZUMAB
     Indication: Colorectal cancer metastatic
     Dosage: UNK
     Dates: start: 20220711
  2. BEVACIZUMAB [Suspect]
     Active Substance: BEVACIZUMAB
     Dosage: 4TH CYCLE
     Dates: start: 20220506
  3. BEVACIZUMAB [Suspect]
     Active Substance: BEVACIZUMAB
     Dosage: 600 MG, INTRAVENOUS DRIP
     Route: 041
  4. OXALIPLATIN [Suspect]
     Active Substance: OXALIPLATIN
     Indication: Colorectal cancer metastatic
     Dosage: CYCLE 05
     Route: 042
     Dates: start: 20220530
  5. OXALIPLATIN [Suspect]
     Active Substance: OXALIPLATIN
     Dosage: 260 MG; 4TH CYCLE
     Route: 042
     Dates: start: 20220506
  6. OXALIPLATIN [Suspect]
     Active Substance: OXALIPLATIN
     Dosage: 260 MG; INTRAVENOUS DRIP
     Route: 041
     Dates: start: 20220303, end: 20220530
  7. DEVICE\YTTRIUM Y-90 [Suspect]
     Active Substance: DEVICE\YTTRIUM Y-90
     Indication: Colorectal cancer metastatic
     Dosage: UNK
     Dates: start: 20220316
  8. DEVICE\YTTRIUM Y-90 [Suspect]
     Active Substance: DEVICE\YTTRIUM Y-90
     Dosage: UNK
     Dates: start: 20220415
  9. CAPECITABINE [Suspect]
     Active Substance: CAPECITABINE
     Indication: Colorectal cancer metastatic
     Dosage: TWICE A DAY; CYCLE 7
     Route: 048
     Dates: start: 20220711
  10. CAPECITABINE [Suspect]
     Active Substance: CAPECITABINE
     Dosage: 2000 MG TWICE PER DAY
     Route: 048
     Dates: start: 20220303, end: 20220725
  11. CAPECITABINE [Suspect]
     Active Substance: CAPECITABINE
     Dosage: 4000 MG ONCE A DAY; 4TH CYCLE
     Route: 048
     Dates: start: 20220506
  12. CAPECITABINE [Suspect]
     Active Substance: CAPECITABINE
     Dosage: CYCLE 07
     Route: 048
     Dates: start: 20220725
  13. ATEZOLIZUMAB [Suspect]
     Active Substance: ATEZOLIZUMAB
     Indication: Colorectal cancer metastatic
     Dosage: 1200 MG, 4TH CYCLE
     Route: 042
     Dates: start: 20220506
  14. ATEZOLIZUMAB [Suspect]
     Active Substance: ATEZOLIZUMAB
     Dosage: 1200 MG; INTRAVENOUS DRIP
     Route: 041
     Dates: start: 20220303
  15. ATEZOLIZUMAB [Suspect]
     Active Substance: ATEZOLIZUMAB
     Dosage: CYCLE 07
     Route: 042
     Dates: start: 20220711
  16. RAMIPRIL [Concomitant]
     Active Substance: RAMIPRIL
     Indication: Hypertension
     Dosage: 5 MG
  17. ACARIZAX [Concomitant]
     Active Substance: DERMATOPHAGOIDES FARINAE\DERMATOPHAGOIDES PTERONYSSINUS
     Indication: Asthma
     Dosage: UNK
     Dates: start: 20211209
  18. ALBUTEROL SULFATE [Concomitant]
     Active Substance: ALBUTEROL SULFATE
     Indication: Asthma
     Dosage: 100 UG
  19. CETIRIZINE HYDROCHLORIDE [Concomitant]
     Active Substance: CETIRIZINE HYDROCHLORIDE
     Indication: Asthma
     Dosage: 10 MG
  20. SINGULAIR [Concomitant]
     Active Substance: MONTELUKAST SODIUM
     Indication: Asthma
     Dosage: 100 MG
  21. ORALAIR [Concomitant]
     Active Substance: ANTHOXANTHUM ODORATUM POLLEN\DACTYLIS GLOMERATA POLLEN\LOLIUM PERENNE POLLEN\PHLEUM PRATENSE POLLEN\
     Indication: Asthma
     Dosage: UNK
     Dates: start: 20211209
  22. SERETIDE [Concomitant]
     Active Substance: FLUTICASONE PROPIONATE\SALMETEROL XINAFOATE
     Indication: Asthma
     Dosage: 500/50 MCG
  23. VERAPAMIL [Concomitant]
     Active Substance: VERAPAMIL HYDROCHLORIDE
     Indication: Hypertension
     Dosage: 240 MG
  24. ATORVASTATIN [Concomitant]
     Active Substance: ATORVASTATIN
     Indication: Dyslipidaemia
     Dosage: 40 MG

REACTIONS (6)
  - Venoocclusive liver disease [Recovered/Resolved]
  - Cholestasis [Unknown]
  - Hepatocellular injury [Unknown]
  - Hepatic cytolysis [Unknown]
  - Portal vein thrombosis [Unknown]
  - Transaminases increased [Unknown]

NARRATIVE: CASE EVENT DATE: 20220703
